FAERS Safety Report 6572724-1 (Version None)
Quarter: 2010Q1

REPORT INFORMATION
  Report Type: 
  Country: None (occurrence: None)
  Receive Date: 20100205
  Receipt Date: 20100127
  Transmission Date: 20100710
  Serious: Yes (Hospitalization)
  Sender: FDA-Public Use
  Company Number: CZ-ABBOTT-10P-217-0621885-00

PATIENT
  Sex: Female

DRUGS (2)
  1. HUMIRA [Suspect]
     Indication: ANKYLOSING SPONDYLITIS
     Route: 058
     Dates: start: 20081222, end: 20090721
  2. HUMIRA [Suspect]
     Route: 058
     Dates: start: 20091018

REACTIONS (2)
  - INCISION SITE ABSCESS [None]
  - OVARIAN CYST [None]
